FAERS Safety Report 5415520-0 (Version None)
Quarter: 2007Q3

REPORT INFORMATION
  Report Type: 
  Country: None (occurrence: None)
  Receive Date: 20070815
  Receipt Date: 20070809
  Transmission Date: 20080115
  Serious: Yes (Hospitalization)
  Sender: FDA-Public Use
  Company Number: A0665286A

PATIENT
  Age: 40 Year
  Sex: Female
  Weight: 193 kg

DRUGS (3)
  1. IMITREX [Suspect]
     Dosage: 20MG UNKNOWN
     Route: 045
     Dates: start: 20070717, end: 20070717
  2. LOTREL [Concomitant]
     Route: 048
  3. AZULFIDINE [Concomitant]
     Dosage: 500U TWICE PER DAY
     Route: 048

REACTIONS (5)
  - AURA [None]
  - BLOOD POTASSIUM ABNORMAL [None]
  - CONVULSION [None]
  - DISORIENTATION [None]
  - LOSS OF CONSCIOUSNESS [None]
